FAERS Safety Report 19196722 (Version 3)
Quarter: 2021Q2

REPORT INFORMATION
  Report Type: Spontaneous
  Country: US (occurrence: US)
  Receive Date: 20210430
  Receipt Date: 20210601
  Transmission Date: 20210717
  Serious: No
  Sender: FDA-Public Use
  Company Number: US-LUPIN PHARMACEUTICALS INC.-2021-05314

PATIENT
  Sex: Female

DRUGS (1)
  1. ALBUTEROL SULFATE INHALATION AEROSOL, 90 MCG/ACTUATION [Suspect]
     Active Substance: ALBUTEROL SULFATE
     Indication: CHRONIC OBSTRUCTIVE PULMONARY DISEASE
     Dosage: UNK, PRN (EVERY 4 HOURS AS NEEDED)
     Dates: start: 202104

REACTIONS (2)
  - Device failure [Unknown]
  - Device defective [Unknown]
